FAERS Safety Report 10219531 (Version 2)
Quarter: 2014Q2

REPORT INFORMATION
  Report Type: Spontaneous
  Country: BR (occurrence: BR)
  Receive Date: 20140605
  Receipt Date: 20140605
  Transmission Date: 20141212
  Serious: Yes (Death, Hospitalization)
  Sender: FDA-Public Use
  Company Number: BR-BRISTOL-MYERS SQUIBB COMPANY-20634218

PATIENT
  Age: 86 Year
  Sex: Male

DRUGS (9)
  1. ELIQUIS [Suspect]
     Indication: ARRHYTHMIA
     Dosage: DOSE REDUCED TO 2.5MGX2/DAY
     Route: 048
     Dates: start: 2014
  2. BROMAZEPAM [Suspect]
     Dates: start: 2014
  3. PAROXETINE HCL [Suspect]
     Indication: SLEEP DISORDER
     Dates: start: 2014
  4. ALLOPURINOL [Concomitant]
  5. QUETIAPINE [Concomitant]
  6. SINVASCOR [Concomitant]
  7. ZOLPIDEM [Concomitant]
     Indication: SLEEP DISORDER
  8. FUROSEMIDE [Concomitant]
     Dosage: DOASE INCREASED TO TWICE PER DAY ONE WEEK AGO BEFORE THE TIME OF THIS REPORT.
  9. DIGOXIN [Concomitant]

REACTIONS (4)
  - Cardiac arrest [Fatal]
  - Mouth haemorrhage [Recovering/Resolving]
  - Pleural effusion [Unknown]
  - Hypersomnia [Unknown]
